FAERS Safety Report 7033681-7 (Version None)
Quarter: 2010Q4

REPORT INFORMATION
  Report Type: 
  Country: None (occurrence: None)
  Receive Date: 20101005
  Receipt Date: 20100922
  Transmission Date: 20110411
  Serious: Yes (Other)
  Sender: FDA-Public Use
  Company Number: 018373

PATIENT
  Sex: Female
  Weight: 69.8 kg

DRUGS (3)
  1. LACOSAMIDE [Suspect]
     Indication: CONVULSION
     Dosage: (400 MG), (600 MG, DOSE INCREASED), (400 MG, 150 MG IN AM; 100 MG POST NOON; 150 MG IN PM)
     Dates: start: 20100101
  2. LACOSAMIDE [Suspect]
     Indication: CONVULSION
     Dosage: (400 MG), (600 MG, DOSE INCREASED), (400 MG, 150 MG IN AM; 100 MG POST NOON; 150 MG IN PM)
     Dates: start: 20100801
  3. BENADRYL ALLERGY /00000402/ [Concomitant]

REACTIONS (5)
  - CONVULSION [None]
  - DIZZINESS [None]
  - DYSPNOEA [None]
  - RASH [None]
  - SYSTEMIC LUPUS ERYTHEMATOSUS [None]
